FAERS Safety Report 8792570 (Version 1)
Quarter: 2012Q4

REPORT INFORMATION
  Report Type: 
  Country: US (occurrence: US)
  Receive Date: 20120918
  Receipt Date: 20120918
  Transmission Date: 20130627
  Serious: Yes (Hospitalization)
  Sender: FDA-Public Use
  Company Number: US-NOVEN-12US005306

PATIENT
  Age: 59 Year
  Sex: Male

DRUGS (3)
  1. FENTANYL [Suspect]
     Indication: PRODUCT USED FOR UNKNOWN INDICATION
     Dosage: UNK
  2. ALPRAZOLAM [Concomitant]
     Indication: PRODUCT USED FOR UNKNOWN INDICATION
  3. ALCOHOL [Concomitant]

REACTIONS (10)
  - Leukoencephalopathy [Recovering/Resolving]
  - Respiratory acidosis [Recovered/Resolved]
  - Hypoxia [Recovering/Resolving]
  - Pneumonia aspiration [Unknown]
  - Myocardial infarction [Unknown]
  - Rhabdomyolysis [Unknown]
  - Renal failure acute [Unknown]
  - Unresponsive to stimuli [Recovered/Resolved]
  - Overdose [Recovered/Resolved]
  - Respiratory rate decreased [Recovered/Resolved]
